FAERS Safety Report 6096514-1 (Version None)
Quarter: 2009Q1

REPORT INFORMATION
  Report Type: 
  Country: None (occurrence: None)
  Receive Date: 20090225
  Receipt Date: 20090225
  Transmission Date: 20090719
  Serious: Yes (Other)
  Sender: FDA-Public Use
  Company Number: None

PATIENT
  Sex: Female
  Weight: 64.8644 kg

DRUGS (1)
  1. RECLAST [Suspect]
     Indication: OSTEOPENIA
     Dosage: 5 MG/100 ML
     Dates: start: 20081210

REACTIONS (3)
  - ARTHRALGIA [None]
  - BURSITIS [None]
  - GAIT DISTURBANCE [None]
